FAERS Safety Report 9490394 (Version 1)
Quarter: 2013Q3

REPORT INFORMATION
  Report Type: Other
  Country: US (occurrence: US)
  Receive Date: 20130830
  Receipt Date: 20130830
  Transmission Date: 20140515
  Serious: Yes (Hospitalization)
  Sender: FDA-Public Use
  Company Number: US-BRISTOL-MYERS SQUIBB COMPANY-19204015

PATIENT
  Age: 35 Year
  Sex: Female

DRUGS (5)
  1. TRIAMCINOLONE ACE INJ [Suspect]
     Dosage: FOR PREVIOUS 3 YEARS.?LAST ADMINISTRATION 8 WEEKS AGO.?1.3 MICROG/DL.
     Route: 014
  2. FLUOXETINE [Interacting]
  3. LACTULOSE [Concomitant]
     Dosage: 1DF=10MG/15 ML.
  4. ZOLPIDEM [Concomitant]
  5. POTASSIUM CHLORIDE [Concomitant]

REACTIONS (4)
  - Adrenal suppression [Unknown]
  - Peptic ulcer [Unknown]
  - Hypokalaemia [Recovering/Resolving]
  - Drug interaction [Unknown]
